FAERS Safety Report 7290479-2 (Version None)
Quarter: 2011Q1

REPORT INFORMATION
  Report Type: 
  Country: None (occurrence: None)
  Receive Date: 20110209
  Receipt Date: 20110209
  Transmission Date: 20110831
  Serious: Yes (Disabling)
  Sender: FDA-Public Use
  Company Number: None

PATIENT
  Age: 58 Year
  Sex: Male
  Weight: 83.9154 kg

DRUGS (1)
  1. STERILE LUBRICATING JELLY 3 GRAMS TRIAD [Suspect]
     Indication: THERAPEUTIC SKIN CARE TOPICAL
     Dosage: 3 GRAMS 5X A DAY INTRA-UTERINE
     Route: 015
     Dates: start: 20110101, end: 20110207

REACTIONS (2)
  - PRODUCT QUALITY ISSUE [None]
  - URINARY TRACT INFECTION [None]
